FAERS Safety Report 6843441-5 (Version None)
Quarter: 2010Q3

REPORT INFORMATION
  Report Type: 
  Country: None (occurrence: None)
  Receive Date: 20100715
  Receipt Date: 20100709
  Transmission Date: 20110219
  Serious: Yes (Death, Other)
  Sender: FDA-Public Use
  Company Number: JP-ASTRAZENECA-2010SE30136

PATIENT
  Age: 66 Year
  Sex: Male
  Weight: 65 kg

DRUGS (11)
  1. SYMBICORT [Suspect]
     Indication: ASTHMA
     Dosage: 60, 4 DF BID
     Route: 055
     Dates: start: 20100608, end: 20100628
  2. FUROSEMIDE [Suspect]
     Indication: CARDIAC FAILURE
     Route: 048
     Dates: start: 20090908, end: 20100628
  3. MEXITIL [Concomitant]
     Indication: ARRHYTHMIA
     Route: 048
     Dates: start: 20071126, end: 20100628
  4. NIKORANMART [Concomitant]
     Indication: ANGINA PECTORIS
     Route: 048
     Dates: start: 20071126, end: 20100628
  5. LIVALO [Concomitant]
     Indication: DYSLIPIDAEMIA
     Route: 048
     Dates: start: 20090714, end: 20100628
  6. BLOPRESS [Concomitant]
     Indication: CARDIAC FAILURE
     Route: 048
     Dates: start: 20090907, end: 20100628
  7. ALDACTONE [Concomitant]
     Indication: CARDIAC FAILURE
     Route: 048
     Dates: start: 20090908, end: 20100628
  8. WARFARIN [Concomitant]
     Indication: THROMBOSIS PROPHYLAXIS
     Route: 048
     Dates: start: 20091126, end: 20100628
  9. MIYA BM [Concomitant]
     Indication: ENTEROCOLITIS
     Route: 048
     Dates: start: 20100224, end: 20100628
  10. MEPTIN [Concomitant]
     Indication: ASTHMA
     Dosage: UNIT DOSE UNKNOWN, THREE TIMES A DAY
     Route: 055
     Dates: start: 20100602, end: 20100628
  11. ASPARA K [Concomitant]
     Indication: HYPOKALAEMIA
     Route: 048
     Dates: start: 20100623, end: 20100628

REACTIONS (2)
  - DEATH [None]
  - HYPOKALAEMIA [None]
